FAERS Safety Report 18109011 (Version 3)
Quarter: 2020Q3

REPORT INFORMATION
  Report Type: Spontaneous
  Country: US (occurrence: US)
  Receive Date: 20200804
  Receipt Date: 20200911
  Transmission Date: 20201103
  Serious: No
  Sender: FDA-Public Use
  Company Number: US-PFIZER INC-2020293157

PATIENT
  Age: 77 Year
  Sex: Female
  Weight: 68.04 kg

DRUGS (1)
  1. EUCRISA [Suspect]
     Active Substance: CRISABOROLE
     Indication: DERMATITIS ATOPIC
     Dosage: UNK, 2X/DAY (APPLY TOPICALLY TO AFFECTED AREA TWICE DAILY)
     Route: 061
     Dates: start: 20200706, end: 20200709

REACTIONS (7)
  - Application site pain [Recovered/Resolved]
  - Application site erythema [Recovered/Resolved]
  - Condition aggravated [Recovered/Resolved]
  - Application site pruritus [Recovered/Resolved]
  - Application site urticaria [Recovered/Resolved]
  - Drug ineffective [Recovered/Resolved]
  - Application site eczema [Recovered/Resolved]

NARRATIVE: CASE EVENT DATE: 20200706
